FAERS Safety Report 8642108 (Version 6)
Quarter: 2012Q4

REPORT INFORMATION
  Report Type: 
  Country: US (occurrence: US)
  Receive Date: 20120628
  Receipt Date: 20121217
  Transmission Date: 20130627
  Serious: Yes (Death, Hospitalization, Other)
  Sender: FDA-Public Use
  Company Number: US-PFIZER INC-2012152621

PATIENT
  Age: 14 Year
  Sex: Female
  Weight: 60.4 kg

DRUGS (24)
  1. TEMSIROLIMUS [Suspect]
     Indication: PRECURSOR B-LYMPHOBLASTIC LEUKEMIA ACUTE
     Dosage: 7.5 mg/m2, over 30 minutes on days 1, 8 and 15 (Max dose: 15 mg)
     Route: 042
     Dates: start: 20120430, end: 20120514
  2. DEXAMETHASONE SODIUM PHOSPHATE [Suspect]
     Indication: B PRECURSOR TYPE ACUTE LEUKEMIA
     Dosage: 10 mg/m2 orally twice daily or IV on days 1-5 and 15-19
     Dates: start: 20120430, end: 20120519
  3. METHOTREXATE SODIUM [Suspect]
     Indication: B PRECURSOR TYPE ACUTE LEUKAEMIA
     Dosage: 8-15 mg (age based dosing) IT on days 1 (or up to 72 hours prior to day 1) and 8
     Route: 037
     Dates: start: 20120430, end: 20120507
  4. MITOXANTRONE HYDROCHLORIDE [Suspect]
     Indication: B PRECURSOR TYPE ACUTE LEUKAEMIA
     Dosage: 10 mg/m2, over 30 minutes on days 1 and 2
     Route: 042
     Dates: start: 20120430, end: 20120501
  5. PEGASPARGASE [Suspect]
     Indication: B PRECURSOR TYPE ACUTE LEUKAEMIA
     Dosage: 2500 IU/m2 over 1 hr on days 3 and 17
     Route: 042
     Dates: start: 20120430, end: 20120516
  6. VINCRISTINE SULFATE [Suspect]
     Indication: B PRECURSOR TYPE ACUTE LEUKAEMIA
     Dosage: 1.5 mg/m2 cyclic (max 2 mg) over 1-5 minutes or infusion via mini bag on days 1, 8, 15 and 22
     Route: 042
     Dates: start: 20120430, end: 20120521
  7. CEFEPIME [Suspect]
     Indication: KLEBSIELLA PNEUMONIAE INFECTION
     Dosage: UNK
     Dates: start: 20120510
  8. CALCIUM GLUCONATE [Suspect]
     Dosage: UNK
  9. AMBISONE [Suspect]
     Indication: CANDIDA TEST POSITIVE
     Dosage: UNK
     Dates: start: 20120520
  10. LMX 4% CREAM [Concomitant]
     Dosage: UNK
  11. TYLENOL [Concomitant]
     Dosage: UNK
  12. VANCOMYCIN [Concomitant]
     Dosage: UNK
  13. MIRALAX [Concomitant]
     Dosage: UNK
  14. PHENERGAN [Concomitant]
     Dosage: UNK
  15. SEPTRA [Concomitant]
     Dosage: UNK
  16. ZOFRAN [Concomitant]
     Dosage: UNK
  17. HYDROCODONE W/ACETAMINOPHEN [Concomitant]
     Dosage: UNK
  18. IBUPROFEN [Concomitant]
     Dosage: UNK
  19. MORPHINE [Concomitant]
     Dosage: UNK
  20. FAMOTIDINE [Concomitant]
     Dosage: UNK
  21. PIPERACILLIN/TAZOBACTAM [Concomitant]
     Dosage: UNK
  22. POLYETHYLENE GLYCOL [Concomitant]
     Dosage: UNK
  23. FENTANYL [Concomitant]
     Dosage: UNK
  24. IMITREX [Concomitant]
     Dosage: UNK

REACTIONS (12)
  - Sepsis [Fatal]
  - Posterior reversible encephalopathy syndrome [Unknown]
  - Acidosis [Unknown]
  - Hypocalcaemia [Unknown]
  - Stomatitis [Unknown]
  - Hypotension [Unknown]
  - Respiratory failure [Unknown]
  - Encephalopathy [Unknown]
  - Hypercalcaemia [Unknown]
  - Enterocolitis [Unknown]
  - Cardiac arrest [Unknown]
  - Convulsion [Recovered/Resolved]
